FAERS Safety Report 5101879-0 (Version None)
Quarter: 2006Q3

REPORT INFORMATION
  Report Type: 
  Country: None (occurrence: None)
  Receive Date: 20060907
  Receipt Date: 20060817
  Transmission Date: 20061208
  Serious: Yes (Hospitalization, Other)
  Sender: FDA-Public Use
  Company Number: US200608004617

PATIENT
  Age: 47 Year
  Sex: Male

DRUGS (5)
  1. ZYPREXA [Suspect]
     Indication: SCHIZOAFFECTIVE DISORDER
     Dosage: 40 MG; 20 MG
  2. LITHIUM (LITHIUM) [Concomitant]
  3. DEPAKOTE [Concomitant]
  4. ZIPRASIDONE HCL [Concomitant]
  5. HALDOL [Concomitant]

REACTIONS (4)
  - AGGRESSION [None]
  - CONDITION AGGRAVATED [None]
  - PRESCRIBED OVERDOSE [None]
  - RENAL FAILURE [None]
